FAERS Safety Report 23565821 (Version 1)
Quarter: 2024Q1

REPORT INFORMATION
  Report Type: Spontaneous
  Country: BR (occurrence: BR)
  Receive Date: 20240226
  Receipt Date: 20240226
  Transmission Date: 20240409
  Serious: Yes (Hospitalization, Other)
  Sender: FDA-Public Use
  Company Number: BR-UCBSA-2024008995

PATIENT
  Sex: Female

DRUGS (1)
  1. KEPPRA [Suspect]
     Active Substance: LEVETIRACETAM
     Indication: Epilepsy
     Dosage: 5 MILLILITER, 2X/DAY (BID)
     Dates: start: 2023

REACTIONS (4)
  - Seizure [Recovered/Resolved]
  - Acne [Unknown]
  - Stress [Unknown]
  - Skin discolouration [Unknown]

NARRATIVE: CASE EVENT DATE: 20230101
